FAERS Safety Report 20688299 (Version 1)
Quarter: 2022Q2

REPORT INFORMATION
  Report Type: Spontaneous
  Country: ES (occurrence: ES)
  Receive Date: 20220408
  Receipt Date: 20220408
  Transmission Date: 20220721
  Serious: Yes (Hospitalization)
  Sender: FDA-Public Use
  Company Number: None

PATIENT
  Age: 76 Year
  Sex: Male

DRUGS (8)
  1. LENALIDOMIDE [Suspect]
     Active Substance: LENALIDOMIDE
     Indication: Plasma cell myeloma
     Dosage: LENALIDOMIDA (8089A), UNIT DOSE: 10 MG, FREQUENCY TIME 1 CYCLICAL, DURATION 1521 DAYS
     Route: 048
     Dates: start: 20180108, end: 20220308
  2. DUTASTERIDE\TAMSULOSIN [Concomitant]
     Active Substance: DUTASTERIDE\TAMSULOSIN
     Indication: Benign prostatic hyperplasia
     Dosage: UNIT DOSE: 1 DF, FREQUENCY TIME 1 DAY, DUODART 0.5 MG/0.4 MG , 30 CAPSULES
     Route: 048
     Dates: start: 20200909
  3. OMEPRAZOL AUROVITAS SPAIN [Concomitant]
     Dosage: OMEPRAZOL AUROVITAS SPAIN 20 MG HARD GASTRO-RESISTANT CAPSULES EFG, 56 CAPSULES, UNIT DOSE: 20 MG, F
     Route: 048
     Dates: start: 20190103
  4. ACICLOVIR AUROVITAS [Concomitant]
     Dosage: UNIT DOSE: 200MG, FREQUENCY TIME 12 HRS, ACICLOVIR AUROVITAS 200 MG TABLETS EFG, 25 TABLETS
     Route: 048
     Dates: start: 20181112
  5. ACETYLSALICYLIC ACID AUROVITAS [Concomitant]
     Dosage: ACIDO ACETILSALICILICO AUROVITAS SPAIN 100 MG , 30 TABLETS, UNIT DOSE: 100 MG, FREQUENCY TIME 1 DAY
     Route: 048
     Dates: start: 20190103
  6. PARACETAMOL KERN PHARMA [Concomitant]
     Dosage: UNIT DOSE: 650 MG, PARACETAMOL KERN PHARMA 650 MG EFG TABLETS, 40 TABLETS, FREQUENCY TIME 8 HRS
     Route: 048
     Dates: start: 20200122
  7. EFENSOL [Concomitant]
     Dosage: UNIT DOSE: 3 GM, FREQUENCY TIME 1 DAY, 40 SACHETS, STRENGTH: 3 GM
     Route: 048
     Dates: start: 20191107
  8. FILGRASTIM [Concomitant]
     Active Substance: FILGRASTIM
     Dosage: ACCOFIL 30 MU/0.5 ML SOLUTION FOR INJECTION AND INFUSION IN PRE-FILLED SYRINGE 1 PRE-FILLED SYRINGE,
     Route: 058
     Dates: start: 20200914, end: 20220308

REACTIONS (1)
  - Pleomorphic malignant fibrous histiocytoma [Unknown]

NARRATIVE: CASE EVENT DATE: 20210817
